FAERS Safety Report 20048890 (Version 1)
Quarter: 2021Q4

REPORT INFORMATION
  Report Type: Spontaneous
  Country: US (occurrence: None)
  Receive Date: 20211108
  Receipt Date: 20211108
  Transmission Date: 20220303
  Serious: Yes (Hospitalization)
  Sender: FDA-Public Use
  Company Number: None

PATIENT
  Age: 57 Year

DRUGS (10)
  1. XIFAXAN [Suspect]
     Active Substance: RIFAXIMIN
     Indication: Hepatitis C
     Dosage: FREQUENCY : EVERY 12 HOURS;?
     Route: 048
     Dates: start: 20210922
  2. FUROEMIDE [Concomitant]
  3. GABAPENTIN [Concomitant]
     Active Substance: GABAPENTIN
  4. SOL-MAGNESIUM [Concomitant]
  5. POTASSIUM [Concomitant]
     Active Substance: POTASSIUM
  6. PROPRANOLOL [Concomitant]
     Active Substance: PROPRANOLOL HYDROCHLORIDE
  7. SUCRALFATE [Concomitant]
     Active Substance: SUCRALFATE
  8. TRAMADL/APAP [Concomitant]
  9. VITAMIN B12 [Concomitant]
     Active Substance: CYANOCOBALAMIN
  10. VITAMIN C [Concomitant]
     Active Substance: ASCORBIC ACID

REACTIONS (1)
  - Spinal operation [None]

NARRATIVE: CASE EVENT DATE: 20211006
